FAERS Safety Report 7768215-2 (Version None)
Quarter: 2011Q3

REPORT INFORMATION
  Report Type: 
  Country: None (occurrence: None)
  Receive Date: 20110922
  Receipt Date: 20110922
  Transmission Date: 20111222
  Serious: Yes (Life-Threatening)
  Sender: FDA-Public Use
  Company Number: None

PATIENT
  Age: 35 Year
  Sex: Female
  Weight: 77.11 kg

DRUGS (1)
  1. CYMBALTA [Suspect]
     Indication: MAJOR DEPRESSION
     Dosage: 40 MG
     Dates: start: 20110814, end: 20110912

REACTIONS (9)
  - HEADACHE [None]
  - NAUSEA [None]
  - SUICIDAL IDEATION [None]
  - CONDITION AGGRAVATED [None]
  - FEELINGS OF WORTHLESSNESS [None]
  - DEPRESSION [None]
  - DRUG WITHDRAWAL SYNDROME [None]
  - FEELING ABNORMAL [None]
  - FEELING OF DESPAIR [None]
